FAERS Safety Report 13717388 (Version 1)
Quarter: 2017Q3

REPORT INFORMATION
  Report Type: Spontaneous
  Country: US (occurrence: US)
  Receive Date: 20170705
  Receipt Date: 20170705
  Transmission Date: 20171127
  Serious: Yes (Hospitalization, Other)
  Sender: FDA-Public Use
  Company Number: US-ASTELLAS-2017US025647

PATIENT
  Sex: Female

DRUGS (9)
  1. BEVACIZUMAB. [Interacting]
     Active Substance: BEVACIZUMAB
     Indication: LENS DISORDER
     Dosage: UNK UNK, UNKNOWN FREQ.
     Route: 065
  2. AMPICILLIN [Suspect]
     Active Substance: AMPICILLIN
     Indication: EVIDENCE BASED TREATMENT
     Route: 042
  3. FLUCYTOSINE. [Concomitant]
     Active Substance: FLUCYTOSINE
     Indication: CANDIDA INFECTION
     Route: 065
  4. MICAFUNGIN [Suspect]
     Active Substance: MICAFUNGIN
     Indication: CANDIDA INFECTION
     Route: 065
  5. CEFEPIME [Suspect]
     Active Substance: CEFEPIME HYDROCHLORIDE
     Indication: SEPSIS
     Route: 065
  6. AMPHOTERICIN B. [Concomitant]
     Active Substance: AMPHOTERICIN B
     Indication: CANDIDA INFECTION
     Route: 042
  7. BEVACIZUMAB. [Interacting]
     Active Substance: BEVACIZUMAB
     Indication: RETINOPATHY OF PREMATURITY
  8. VANCOMYCIN [Suspect]
     Active Substance: VANCOMYCIN
     Indication: SEPSIS
     Route: 065
  9. GENTAMICIN. [Suspect]
     Active Substance: GENTAMICIN
     Indication: EVIDENCE BASED TREATMENT
     Route: 065

REACTIONS (9)
  - Lenticular opacities [Unknown]
  - Abscess fungal [Recovered/Resolved]
  - Aphakia [Recovered/Resolved]
  - Retinopathy of prematurity [Recovered/Resolved]
  - Lens disorder [Recovering/Resolving]
  - Retinopathy of prematurity [Recovering/Resolving]
  - Candida endophthalmitis [Recovered/Resolved]
  - Drug interaction [Unknown]
  - Drug ineffective [Unknown]
